FAERS Safety Report 7537255-0 (Version None)
Quarter: 2011Q2

REPORT INFORMATION
  Report Type: 
  Country: None (occurrence: None)
  Receive Date: 20110609
  Receipt Date: 20110606
  Transmission Date: 20111010
  Serious: No
  Sender: FDA-Public Use
  Company Number: US-PFIZER INC-2011123566

PATIENT
  Sex: Female
  Weight: 68.027 kg

DRUGS (3)
  1. ZOLOFT [Suspect]
     Indication: ANXIETY
     Dosage: 25MG DAILY
     Route: 048
     Dates: start: 20110511, end: 20110501
  2. ZOLOFT [Suspect]
     Dosage: 50 MG DAILY
     Route: 048
     Dates: start: 20110501, end: 20110501
  3. ZOLOFT [Suspect]
     Dosage: 100 MG DAILY
     Route: 048
     Dates: start: 20110501

REACTIONS (1)
  - TINNITUS [None]
